FAERS Safety Report 8914505 (Version 3)
Quarter: 2013Q1

REPORT INFORMATION
  Report Type: Spontaneous
  Country: US (occurrence: US)
  Receive Date: 20121119
  Receipt Date: 20130109
  Transmission Date: 20140127
  Serious: Yes (Hospitalization, Other)
  Sender: FDA-Public Use
  Company Number: US-PFIZER INC-2012283473

PATIENT
  Age: 4 Year
  Sex: Female
  Weight: 14.97 kg

DRUGS (2)
  1. CLINDAMYCIN PALMITATE HYDROCHLORIDE [Suspect]
     Indication: NODULE
     Dosage: 8 ML, 3X/DAY (EVERY 8 HOURS)
     Route: 048
     Dates: start: 20121109, end: 20121111
  2. VENTOLIN HFA [Concomitant]
     Dosage: UNK

REACTIONS (7)
  - Drug ineffective [Unknown]
  - Nodule [Unknown]
  - Pyrexia [Unknown]
  - Upper respiratory tract congestion [Not Recovered/Not Resolved]
  - Blood test abnormal [Unknown]
  - Poor quality drug administered [Unknown]
  - Circumstance or information capable of leading to medication error [Unknown]
